FAERS Safety Report 5411102-5 (Version None)
Quarter: 2007Q3

REPORT INFORMATION
  Report Type: 
  Country: None (occurrence: None)
  Receive Date: 20070810
  Receipt Date: 20070614
  Transmission Date: 20080115
  Serious: Yes (Disabling, Other)
  Sender: FDA-Public Use
  Company Number: US-PURDUE-USA_2007_0028038

PATIENT
  Sex: Male
  Weight: 79 kg

DRUGS (1)
  1. OXYCONTIN [Suspect]
     Dates: start: 19980427, end: 20020708

REACTIONS (41)
  - ABDOMINAL PAIN UPPER [None]
  - AFFECT LABILITY [None]
  - AMNESIA [None]
  - ANOREXIA [None]
  - ANTISOCIAL BEHAVIOUR [None]
  - ANXIETY [None]
  - ASTHENIA [None]
  - BRAIN DAMAGE [None]
  - BURNING SENSATION [None]
  - CHEST PAIN [None]
  - COLD SWEAT [None]
  - CONSTIPATION [None]
  - CRYING [None]
  - DEPRESSION [None]
  - DIARRHOEA [None]
  - DISABILITY [None]
  - DRUG DEPENDENCE [None]
  - DRUG WITHDRAWAL SYNDROME [None]
  - EYE DISORDER [None]
  - HAEMORRHOIDAL HAEMORRHAGE [None]
  - HAEMORRHOIDS [None]
  - HEADACHE [None]
  - HEART RATE IRREGULAR [None]
  - INSOMNIA [None]
  - IRRITABILITY [None]
  - MENTAL DISORDER [None]
  - MOOD ALTERED [None]
  - MUSCLE ATROPHY [None]
  - MUSCLE INJURY [None]
  - MUSCLE SPASMS [None]
  - NAUSEA [None]
  - PAIN [None]
  - PAIN IN EXTREMITY [None]
  - RESPIRATORY DISORDER [None]
  - SUBSTANCE ABUSE [None]
  - SUICIDAL IDEATION [None]
  - SYNCOPE [None]
  - THINKING ABNORMAL [None]
  - TREMOR [None]
  - VISUAL DISTURBANCE [None]
  - WEIGHT DECREASED [None]
